FAERS Safety Report 8587638 (Version 3)
Quarter: 2012Q4

REPORT INFORMATION
  Report Type: 
  Country: TR (occurrence: TR)
  Receive Date: 20120531
  Receipt Date: 20120830
  Transmission Date: 20130627
  Serious: Yes (Hospitalization)
  Sender: FDA-Public Use
  Company Number: PHHY2011TR113411

PATIENT
  Age: 67 Year
  Sex: Female
  Weight: 49 kg

DRUGS (8)
  1. TASIGNA [Suspect]
     Indication: CHRONIC MYELOID LEUKAEMIA
     Dosage: 200 mg, BID
     Route: 048
     Dates: start: 20110615
  2. TASIGNA [Suspect]
     Dosage: 800 mg, daily
     Route: 048
  3. TASIGNA [Suspect]
     Dosage: 400 mg, daily
     Route: 048
  4. TASIGNA [Suspect]
     Dosage: 800 mg, daily
     Route: 048
  5. TASIGNA [Suspect]
     Dosage: 400 mg, daily
     Route: 048
  6. TASIGNA [Suspect]
     Dosage: 800 mg, daily
     Route: 048
     Dates: start: 20111115, end: 20111230
  7. TASIGNA [Suspect]
     Dosage: 200 mg, per day
     Route: 048
     Dates: start: 20120126, end: 20120515
  8. TASIGNA [Suspect]
     Dosage: 200 mg per day
     Route: 048
     Dates: end: 20120626

REACTIONS (5)
  - Drug intolerance [Recovered/Resolved]
  - Pancytopenia [Not Recovered/Not Resolved]
  - Ecchymosis [Recovered/Resolved]
  - Malaise [Unknown]
  - Pain [Unknown]
